FAERS Safety Report 21137976 (Version 1)
Quarter: 2022Q3

REPORT INFORMATION
  Report Type: Spontaneous
  Country: US (occurrence: US)
  Receive Date: 20220727
  Receipt Date: 20220727
  Transmission Date: 20221027
  Serious: Yes (Other)
  Sender: FDA-Public Use
  Company Number: US-SA-SAC20220726000641

PATIENT
  Age: 49 Year
  Sex: Female

DRUGS (1)
  1. ZANTAC [Suspect]
     Active Substance: RANITIDINE HYDROCHLORIDE
     Indication: Dyspepsia
     Dosage: UNK, QD
     Dates: start: 199601, end: 201901

REACTIONS (3)
  - Lung carcinoma cell type unspecified stage IV [Not Recovered/Not Resolved]
  - Brain neoplasm malignant [Not Recovered/Not Resolved]
  - Malignant neoplasm of spinal cord [Not Recovered/Not Resolved]

NARRATIVE: CASE EVENT DATE: 20160901
